FAERS Safety Report 12508413 (Version 2)
Quarter: 2016Q3

REPORT INFORMATION
  Report Type: Report from Study
  Country: PT (occurrence: PT)
  Receive Date: 20160629
  Receipt Date: 20160713
  Transmission Date: 20161109
  Serious: Yes (Other)
  Sender: FDA-Public Use
  Company Number: PT-PFIZER INC-2016307542

PATIENT
  Age: 64 Year
  Sex: Male

DRUGS (1)
  1. SUNITINIB MALATE. [Suspect]
     Active Substance: SUNITINIB MALATE
     Indication: METASTATIC RENAL CELL CARCINOMA
     Dosage: 50 MG, DAILY
     Dates: start: 200803, end: 200808

REACTIONS (8)
  - Fatigue [Unknown]
  - Dysgeusia [Unknown]
  - Hyponatraemia [Unknown]
  - Diarrhoea [Unknown]
  - Hypertension [Unknown]
  - Skin discolouration [Unknown]
  - Mucosal inflammation [Unknown]
  - Thrombocytopenia [Unknown]
